FAERS Safety Report 6154074-0 (Version None)
Quarter: 2009Q2

REPORT INFORMATION
  Report Type: 
  Country: None (occurrence: None)
  Receive Date: 20090414
  Receipt Date: 20090403
  Transmission Date: 20091009
  Serious: Yes (Other)
  Sender: FDA-Public Use
  Company Number: GB-ROCHE-626031

PATIENT
  Sex: Female
  Weight: 96.5 kg

DRUGS (4)
  1. ORLISTAT [Suspect]
     Indication: OBESITY
     Route: 048
     Dates: start: 20090118, end: 20090320
  2. PARACETAMOL [Concomitant]
     Indication: PAIN
     Route: 048
  3. PROZAC [Concomitant]
     Indication: DEPRESSION
     Route: 048
  4. DIHYDROCODEINE BITARTRATE INJ [Concomitant]
     Indication: DEPRESSION
     Dosage: REPORTED AS DIHYDROCODINE TAKEN TWO, THREE TIMES A DAY
     Route: 048

REACTIONS (1)
  - HALLUCINATION [None]
